FAERS Safety Report 12480884 (Version 1)
Quarter: 2016Q2

REPORT INFORMATION
  Report Type: Spontaneous
  Country: MX (occurrence: MX)
  Receive Date: 20160620
  Receipt Date: 20160620
  Transmission Date: 20160815
  Serious: Yes (Other)
  Sender: FDA-Public Use
  Company Number: MX-IPSEN BIOPHARMACEUTICALS, INC.-2016-05370

PATIENT
  Age: 35 Year
  Sex: Male

DRUGS (1)
  1. DYSPORT [Suspect]
     Active Substance: ABOBOTULINUMTOXINA
     Indication: MUSCLE SPASTICITY
     Dosage: 2500 UNITS
     Route: 030
     Dates: start: 201510, end: 201510

REACTIONS (2)
  - Overdose [Unknown]
  - Hypotonia [Recovered/Resolved]

NARRATIVE: CASE EVENT DATE: 201510
